FAERS Safety Report 9165521 (Version 1)
Quarter: 2013Q1

REPORT INFORMATION
  Report Type: Report from Study
  Country: FR (occurrence: FR)
  Receive Date: 20130315
  Receipt Date: 20130315
  Transmission Date: 20140127
  Serious: Yes (Disabling)
  Sender: FDA-Public Use
  Company Number: FR-BAXTER-2012BAX026084

PATIENT
  Age: 77 Year
  Sex: Female
  Weight: 50 kg

DRUGS (6)
  1. ENDOXAN 2000 MG, LYOPHILISAT POUR SOLUTION INJECTABLE [Suspect]
     Indication: B-CELL LYMPHOMA
     Route: 065
     Dates: start: 20061013, end: 20070131
  2. RITUXIMAB [Suspect]
     Indication: B-CELL LYMPHOMA
     Route: 042
     Dates: start: 20061013, end: 20061013
  3. RITUXIMAB [Suspect]
     Route: 042
     Dates: start: 20070707, end: 20081230
  4. DOXORUBICIN [Suspect]
     Indication: B-CELL LYMPHOMA
     Route: 065
     Dates: start: 20061013, end: 20070131
  5. VINCRISTINE [Suspect]
     Indication: B-CELL LYMPHOMA
     Route: 065
     Dates: start: 20061013, end: 20070131
  6. METHYLPREDNISOLONE [Suspect]
     Indication: B-CELL LYMPHOMA
     Route: 065
     Dates: start: 20061013, end: 20070131

REACTIONS (1)
  - Mycobacterial infection [Recovered/Resolved]
